FAERS Safety Report 24236467 (Version 2)
Quarter: 2024Q3

REPORT INFORMATION
  Report Type: Spontaneous
  Country: US (occurrence: US)
  Receive Date: 20240822
  Receipt Date: 20240828
  Transmission Date: 20241017
  Serious: Yes (Hospitalization, Other)
  Sender: ALKEM
  Company Number: None

PATIENT
  Age: 24 Year
  Sex: Male

DRUGS (7)
  1. MYCOPHENOLATE MOFETIL [Suspect]
     Active Substance: MYCOPHENOLATE MOFETIL
     Indication: Prophylaxis against graft versus host disease
     Dosage: UNK
     Route: 065
  2. TACROLIMUS [Suspect]
     Active Substance: TACROLIMUS
     Indication: Prophylaxis against graft versus host disease
     Dosage: 1.5 MILLIGRAM, QD, INFUSION (EVERY 24 HOUR) (STOPPED FOR 4 HOURS)
     Route: 042
  3. TACROLIMUS [Suspect]
     Active Substance: TACROLIMUS
     Dosage: UNK (RESTARTED)
     Route: 065
  4. THYMOCYTE IMMUNE GLOBULIN NOS [Suspect]
     Active Substance: THYMOCYTE IMMUNE GLOBULIN NOS
     Indication: Myelodysplastic syndrome
     Dosage: UNK
     Route: 065
  5. THYMOCYTE IMMUNE GLOBULIN NOS [Suspect]
     Active Substance: THYMOCYTE IMMUNE GLOBULIN NOS
     Indication: Bone marrow conditioning regimen
  6. FLUDARABINE [Concomitant]
     Active Substance: FLUDARABINE PHOSPHATE
     Indication: Myelodysplastic syndrome
     Dosage: UNK
     Route: 065
  7. FLUDARABINE [Concomitant]
     Active Substance: FLUDARABINE PHOSPHATE
     Indication: Bone marrow conditioning regimen

REACTIONS (6)
  - Parkinsonism [Recovered/Resolved]
  - Blood pressure increased [Unknown]
  - Cytomegalovirus infection [Unknown]
  - Chronic graft versus host disease oral [Recovered/Resolved]
  - Nausea [Unknown]
  - Vomiting [Unknown]
